FAERS Safety Report 4327771-7 (Version None)
Quarter: 2004Q1

REPORT INFORMATION
  Report Type: 
  Country: None (occurrence: None)
  Receive Date: 20040325
  Receipt Date: 20040315
  Transmission Date: 20041129
  Serious: Yes (Hospitalization)
  Sender: FDA-Public Use
  Company Number: 2004017496

PATIENT
  Age: 34 Year
  Sex: Female

DRUGS (1)
  1. ZITHROMAX [Suspect]
     Indication: PERIODONTAL DISEASE
     Dosage: 500 MG (DAILY), ORAL
     Route: 048
     Dates: start: 20040305, end: 20040307

REACTIONS (4)
  - ABDOMINAL PAIN [None]
  - CHILLS [None]
  - DIARRHOEA [None]
  - HAEMATOCHEZIA [None]
